FAERS Safety Report 17984718 (Version 4)
Quarter: 2020Q3

REPORT INFORMATION
  Report Type: Spontaneous
  Country: US (occurrence: US)
  Receive Date: 20200706
  Receipt Date: 20200724
  Transmission Date: 20201103
  Serious: Yes (Other)
  Sender: FDA-Public Use
  Company Number: US-SA-2020SA171865

PATIENT

DRUGS (1)
  1. ADMELOG [Suspect]
     Active Substance: INSULIN LISPRO
     Indication: TYPE 1 DIABETES MELLITUS
     Dosage: UNK
     Route: 065

REACTIONS (4)
  - Product quality issue [Unknown]
  - Therapeutic product effect decreased [Unknown]
  - Diabetes mellitus inadequate control [Unknown]
  - Blood glucose increased [Unknown]
